FAERS Safety Report 5655432-0 (Version None)
Quarter: 2008Q1

REPORT INFORMATION
  Report Type: 
  Country: None (occurrence: None)
  Receive Date: 20080307
  Receipt Date: 20080225
  Transmission Date: 20080703
  Serious: Yes (Other)
  Sender: FDA-Public Use
  Company Number: DE-ROCHE-549449

PATIENT

DRUGS (1)
  1. OSELTAMIVIR [Suspect]
     Indication: INFLUENZA
     Dosage: THE PATIENT RECEIVED ONLY ONE DOSAGE FORM.
     Route: 065

REACTIONS (3)
  - HAEMANGIOMA [None]
  - RASH [None]
  - VOMITING [None]
